FAERS Safety Report 6598501-3 (Version None)
Quarter: 2010Q1

REPORT INFORMATION
  Report Type: 
  Country: None (occurrence: None)
  Receive Date: 20100224
  Receipt Date: 20050321
  Transmission Date: 20100710
  Serious: Yes (Hospitalization, Other)
  Sender: FDA-Public Use
  Company Number: US-ALLERGAN-200500657

PATIENT
  Age: 30 Year
  Sex: Female

DRUGS (2)
  1. BOTOX COSMETIC [Suspect]
     Indication: SKIN WRINKLING
     Dosage: 35UNITS, SINGLE
     Route: 030
     Dates: start: 20030815
  2. YASMIN [Concomitant]
     Indication: ORAL CONTRACEPTION
     Dates: start: 20030601, end: 20030801

REACTIONS (2)
  - POLYHYDRAMNIOS [None]
  - PREMATURE LABOUR [None]
